FAERS Safety Report 4680984-7 (Version None)
Quarter: 2005Q2

REPORT INFORMATION
  Report Type: 
  Country: None (occurrence: None)
  Receive Date: 20050601
  Receipt Date: 20050518
  Transmission Date: 20051028
  Serious: Yes (Hospitalization, Other)
  Sender: FDA-Public Use
  Company Number: 2004-00786

PATIENT
  Age: 66 Year
  Sex: Female

DRUGS (5)
  1. VELCADE [Suspect]
     Indication: MULTIPLE MYELOMA
     Dosage: 1.30 + 1.00 MG/M2, IV BOLUS
     Route: 040
     Dates: start: 20041001, end: 20041105
  2. VELCADE [Suspect]
     Indication: MULTIPLE MYELOMA
     Dosage: 1.30 + 1.00 MG/M2, IV BOLUS
     Route: 040
     Dates: start: 20050208
  3. AVANDIA [Concomitant]
  4. PRAVACHOL [Concomitant]
  5. ZOMETA [Concomitant]

REACTIONS (5)
  - CHEST PAIN [None]
  - EJECTION FRACTION DECREASED [None]
  - LOSS OF CONSCIOUSNESS [None]
  - NEUROPATHY PERIPHERAL [None]
  - ORTHOSTATIC HYPOTENSION [None]
